FAERS Safety Report 16548288 (Version 1)
Quarter: 2019Q3

REPORT INFORMATION
  Report Type: Spontaneous
  Country: US (occurrence: US)
  Receive Date: 20190709
  Receipt Date: 20190709
  Transmission Date: 20191004
  Serious: Yes (Death, Hospitalization, Other)
  Sender: FDA-Public Use
  Company Number: US-MYLANLABS-2019M1063703

PATIENT
  Age: 57 Year
  Sex: Male

DRUGS (5)
  1. CEFEPIME [Concomitant]
     Active Substance: CEFEPIME HYDROCHLORIDE
     Indication: PSEUDOMONAS INFECTION
     Route: 065
  2. EPINEPHRINE. [Suspect]
     Active Substance: EPINEPHRINE
     Indication: GASTROINTESTINAL HAEMORRHAGE
     Route: 065
  3. DEXAMETHASONE. [Suspect]
     Active Substance: DEXAMETHASONE
     Indication: IMMUNOSUPPRESSANT DRUG THERAPY
     Dosage: INITIAL DOSE FOLLOWED BY 10DAY TAPERING
     Route: 042
  4. DEXAMETHASONE. [Suspect]
     Active Substance: DEXAMETHASONE
     Indication: MENINGIOMA
  5. CEFEPIME [Concomitant]
     Active Substance: CEFEPIME HYDROCHLORIDE
     Indication: ENTEROBACTER BACTERAEMIA

REACTIONS (15)
  - Intestinal mass [Unknown]
  - Drug ineffective [Fatal]
  - Shunt infection [Unknown]
  - Shock [Fatal]
  - Multiple organ dysfunction syndrome [Fatal]
  - Gastric mucosa erythema [Unknown]
  - Leukocytosis [Unknown]
  - Symptom masked [Unknown]
  - Pseudomonas infection [Unknown]
  - Gastrointestinal haemorrhage [Fatal]
  - Enterobacter bacteraemia [Unknown]
  - Gastrointestinal necrosis [Unknown]
  - Gastrointestinal perforation [Fatal]
  - Strongyloidiasis [Fatal]
  - Anaemia [Unknown]
